FAERS Safety Report 21434080 (Version 1)
Quarter: 2022Q4

REPORT INFORMATION
  Report Type: Spontaneous
  Country: PK (occurrence: PK)
  Receive Date: 20221010
  Receipt Date: 20221010
  Transmission Date: 20230112
  Serious: Yes (Other)
  Sender: FDA-Public Use
  Company Number: PK-MACLEODS PHARMACEUTICALS US LTD-MAC2022037680

PATIENT

DRUGS (7)
  1. TAMSULOSIN [Interacting]
     Active Substance: TAMSULOSIN
     Indication: Benign prostatic hyperplasia
     Dosage: 0.4 MILLIGRAM, QD, AT NIGHT
     Route: 065
  2. THIOPENTAL SODIUM [Interacting]
     Active Substance: THIOPENTAL SODIUM
     Indication: General anaesthesia
     Dosage: 5 MILLIGRAM/KILOGRAM
     Route: 065
  3. MEPERIDINE [Interacting]
     Active Substance: MEPERIDINE
     Indication: General anaesthesia
     Dosage: 1 MILLIGRAM/KILOGRAM
     Route: 065
  4. ATRACURIUM [Interacting]
     Active Substance: ATRACURIUM
     Indication: General anaesthesia
     Dosage: 0.5 MILLIGRAM/KILOGRAM
     Route: 065
  5. ISOFLURANE [Interacting]
     Active Substance: ISOFLURANE
     Indication: General anaesthesia
     Dosage: 1 PERCENT
     Route: 065
  6. NITROUS OXIDE\OXYGEN [Interacting]
     Active Substance: NITROUS OXIDE\OXYGEN
     Indication: General anaesthesia
     Dosage: UNK
     Route: 065
  7. CEFAZOLIN [Concomitant]
     Active Substance: CEFAZOLIN
     Indication: Product used for unknown indication
     Dosage: 1 GRAM
     Route: 042

REACTIONS (2)
  - Hypotension [Recovered/Resolved]
  - Drug interaction [Unknown]
